FAERS Safety Report 5365354-0 (Version None)
Quarter: 2007Q2

REPORT INFORMATION
  Report Type: 
  Country: None (occurrence: None)
  Receive Date: 20070621
  Receipt Date: 20070614
  Transmission Date: 20071010
  Serious: Yes (Hospitalization)
  Sender: FDA-Public Use
  Company Number: US-ROCHE-502358

PATIENT
  Age: 67 Year
  Sex: Female

DRUGS (8)
  1. PEG-INTERFERON A-2A (RO 25-8310) [Suspect]
     Route: 058
     Dates: start: 20061224
  2. MULTIVITAMIN NOS [Concomitant]
  3. CALCIUM CHLORIDE [Concomitant]
  4. ASCORBIC ACID [Concomitant]
  5. ATENOLOL [Concomitant]
  6. DIOVAN HCT [Concomitant]
     Dosage: REPORTED AS 80/125 MG
  7. PLAVIX [Concomitant]
  8. ASPIRIN [Concomitant]

REACTIONS (3)
  - HYPOTENSION [None]
  - SINUS BRADYCARDIA [None]
  - SYNCOPE [None]
